FAERS Safety Report 10048389 (Version 1)
Quarter: 2014Q1

REPORT INFORMATION
  Report Type: Spontaneous
  Country: US (occurrence: US)
  Receive Date: 20140331
  Receipt Date: 20140331
  Transmission Date: 20141002
  Serious: No
  Sender: FDA-Public Use
  Company Number: US-BAYER-2014-036225

PATIENT
  Age: 78 Year
  Sex: Female

DRUGS (27)
  1. ALEVE CAPLET [Suspect]
     Dosage: UNK
  2. ALBUTEROL INHALER [Concomitant]
  3. ALPRAZOLAM [Concomitant]
  4. NORVASC [Concomitant]
  5. AUGMENTIN [Concomitant]
  6. ASPIRIN [Concomitant]
  7. ARTIFICIAL TEARS [ARTIFICIAL TEARS] [Concomitant]
  8. CALCIUM CARBONATE W/MAGNESIUM [Concomitant]
  9. CARVEDILOL [Suspect]
  10. COLECALCIFEROL [Concomitant]
  11. CODEINE W/GUAIFENESIN [Concomitant]
  12. CYMBALTA [Concomitant]
  13. CYMBALTA [Concomitant]
  14. ETODOLAC [Concomitant]
  15. HYDROCHLOROTHIAZIDE [Suspect]
  16. HYDROCODONE W/ACETAMINOPHEN [Concomitant]
     Dosage: REPORTED CONCENTRATION(7.5-325 MG)
  17. LEVOTHYROXINE [Concomitant]
  18. LIDOCAINE [Concomitant]
  19. LINOLEIC ACID [Concomitant]
  20. LISINOPRIL [Concomitant]
  21. MULTIVITAMIN [Concomitant]
  22. NORTRIPTYLINE [Concomitant]
  23. NORTRIPTYLINE [Concomitant]
  24. NITROGLYCERIN [Concomitant]
  25. OMEPRAZOLE [Concomitant]
  26. PREGABALIN [Concomitant]
  27. SIMVASTATIN [Concomitant]

REACTIONS (1)
  - Hypersensitivity [None]
